FAERS Safety Report 4586714-1 (Version None)
Quarter: 2005Q1

REPORT INFORMATION
  Report Type: 
  Country: None (occurrence: None)
  Receive Date: 20050218
  Receipt Date: 20050209
  Transmission Date: 20050727
  Serious: Yes (Other)
  Sender: FDA-Public Use
  Company Number: 200511409GDDC

PATIENT
  Age: 30 Year
  Sex: Female

DRUGS (3)
  1. ARAVA [Suspect]
     Route: 048
     Dates: start: 20030201, end: 20040201
  2. DELTISONA B [Concomitant]
     Route: 048
     Dates: start: 20030201, end: 20040201
  3. HYDROXYCHLOROQUINE SULFATE [Concomitant]
     Route: 048
     Dates: start: 20030201, end: 20040201

REACTIONS (4)
  - ARRESTED LABOUR [None]
  - CAESAREAN SECTION [None]
  - DRUG EXPOSURE DURING PREGNANCY [None]
  - PREGNANCY [None]
